FAERS Safety Report 5136119-X (Version None)
Quarter: 2006Q4

REPORT INFORMATION
  Report Type: 
  Country: None (occurrence: None)
  Receive Date: 20061027
  Receipt Date: 20061016
  Transmission Date: 20070319
  Serious: Yes (Hospitalization)
  Sender: FDA-Public Use
  Company Number: JP-JNJFOC-20061004040

PATIENT
  Age: 35 Year
  Sex: Female

DRUGS (4)
  1. TYLENOL A [Suspect]
  2. TYLENOL A [Suspect]
     Indication: HEADACHE
  3. PENTASA [Concomitant]
     Indication: CROHN'S DISEASE
     Route: 048
  4. PREDNISOLONE [Concomitant]
     Indication: CROHN'S DISEASE
     Route: 048

REACTIONS (5)
  - CONDITION AGGRAVATED [None]
  - CROHN'S DISEASE [None]
  - DRUG TOXICITY [None]
  - ENTEROCOLITIS HAEMORRHAGIC [None]
  - LYMPHOCYTE STIMULATION TEST POSITIVE [None]
